FAERS Safety Report 4472900-8 (Version None)
Quarter: 2004Q4

REPORT INFORMATION
  Report Type: 
  Country: None (occurrence: None)
  Receive Date: 20041012
  Receipt Date: 20041012
  Transmission Date: 20050328
  Serious: Yes (Other)
  Sender: FDA-Public Use
  Company Number: None

PATIENT
  Age: 50 Year
  Sex: Female
  Weight: 95.2554 kg

DRUGS (1)
  1. VIOXX [Suspect]
     Indication: BACK PAIN
     Dosage: 1 CD EVERY DAY ORAL
     Route: 048
     Dates: start: 20030317, end: 20040201

REACTIONS (2)
  - HYPERTENSION [None]
  - PALPITATIONS [None]
